FAERS Safety Report 19165002 (Version 4)
Quarter: 2021Q3

REPORT INFORMATION
  Report Type: Report from Study
  Country: JP (occurrence: JP)
  Receive Date: 20210421
  Receipt Date: 20210825
  Transmission Date: 20211014
  Serious: Yes (Hospitalization, Disabling)
  Sender: FDA-Public Use
  Company Number: JP-EMD SERONO-9233511

PATIENT
  Age: 83 Year
  Sex: Male
  Weight: 62 kg

DRUGS (4)
  1. BAVENCIO [Suspect]
     Active Substance: AVELUMAB
     Indication: METASTATIC RENAL CELL CARCINOMA
     Route: 041
     Dates: start: 20210217
  2. INLYTA [Concomitant]
     Active Substance: AXITINIB
     Indication: METASTATIC RENAL CELL CARCINOMA
     Dates: start: 20210217, end: 20210330
  3. DIPHENHYDRAMINE. [Concomitant]
     Active Substance: DIPHENHYDRAMINE
     Indication: PREMEDICATION
     Route: 048
     Dates: start: 20210217, end: 20210217
  4. ACETAMINOPHEN. [Concomitant]
     Active Substance: ACETAMINOPHEN
     Indication: PREMEDICATION
     Route: 048
     Dates: start: 20210217, end: 20210217

REACTIONS (4)
  - Diabetic ketoacidosis [Recovered/Resolved with Sequelae]
  - Ventricular fibrillation [Recovering/Resolving]
  - Type 1 diabetes mellitus [Not Recovered/Not Resolved]
  - Hyperkalaemia [Recovering/Resolving]

NARRATIVE: CASE EVENT DATE: 20210310
